FAERS Safety Report 7782728-9 (Version None)
Quarter: 2011Q3

REPORT INFORMATION
  Report Type: 
  Country: None (occurrence: None)
  Receive Date: 20110928
  Receipt Date: 20110926
  Transmission Date: 20111222
  Serious: Yes (Other)
  Sender: FDA-Public Use
  Company Number: US-PFIZER INC-2011228778

PATIENT
  Sex: Male
  Weight: 81.633 kg

DRUGS (6)
  1. LIPITOR [Suspect]
     Dosage: UNK
  2. LISINOPRIL [Concomitant]
     Dosage: UNK
  3. NIASPAN [Suspect]
     Indication: HIGH DENSITY LIPOPROTEIN DECREASED
     Dosage: 1000 MG IN AM, 1000 MG AT BEDTIME
     Dates: start: 20090701
  4. ACETYLSALICYLIC ACID [Concomitant]
     Dosage: UNK
  5. NIASPAN [Suspect]
     Indication: BLOOD TRIGLYCERIDES INCREASED
  6. ENOXAPARIN SODIUM [Concomitant]
     Dosage: UNK
     Route: 058

REACTIONS (3)
  - FLUSHING [None]
  - HIP SURGERY [None]
  - MYALGIA [None]
